FAERS Safety Report 18527538 (Version 1)
Quarter: 2020Q4

REPORT INFORMATION
  Report Type: Spontaneous
  Country: US (occurrence: US)
  Receive Date: 20201120
  Receipt Date: 20201120
  Transmission Date: 20210114
  Serious: Yes (Hospitalization)
  Sender: FDA-Public Use
  Company Number: None

PATIENT
  Age: 14 Year
  Sex: Male
  Weight: 52.7 kg

DRUGS (8)
  1. PULMONZYME 2.5/2.5 NEB 90=30 [Concomitant]
  2. IBUPROFEN 200 MG TAB [Concomitant]
  3. SOD CLO 7% 4ML 4=1 NEB [Concomitant]
  4. PREDNISONE SOLUTION [Suspect]
     Active Substance: PREDNISONE
     Indication: PRODUCT USED FOR UNKNOWN INDICATION
     Dosage: ?          OTHER FREQUENCY:NOT DISPENSED HERE;?
     Route: 048
  5. CEDFINIR 300 MG CAP [Concomitant]
  6. TRIKAFTA [Concomitant]
     Active Substance: ELEXACAFTOR\IVACAFTOR\TEZACAFTOR
  7. PREDNISONE 20 MG TAB [Concomitant]
     Active Substance: PREDNISONE
  8. AMOX/K CALV 875-125 TAB [Concomitant]

REACTIONS (1)
  - Cystic fibrosis [None]

NARRATIVE: CASE EVENT DATE: 20201114
